FAERS Safety Report 4590816-3 (Version None)
Quarter: 2005Q1

REPORT INFORMATION
  Report Type: 
  Country: None (occurrence: None)
  Receive Date: 20050222
  Receipt Date: 20050222
  Transmission Date: 20050727
  Serious: Yes (Life-Threatening, Hospitalization)
  Sender: FDA-Public Use
  Company Number: None

PATIENT
  Sex: Male
  Weight: 75.2971 kg

DRUGS (14)
  1. TAXOTERE [Suspect]
     Indication: NON-SMALL CELL LUNG CANCER
     Dosage: 20 MG /M2 /WEEK AUC 2/WEEK 1-8 FOR DAILY X 5 DAYS /WEEK/ 75MG\M2 Q3 WEEKS
     Dates: start: 20041018, end: 20041221
  2. TAXOTERE [Suspect]
     Indication: NON-SMALL CELL LUNG CANCER
     Dosage: 20 MG /M2 /WEEK AUC 2/WEEK 1-8 FOR DAILY X 5 DAYS /WEEK/ 75MG\M2 Q3 WEEKS
     Dates: start: 20050105, end: 20050203
  3. CARBOPLATIN [Suspect]
     Indication: NON-SMALL CELL LUNG CANCER
     Dosage: AUC 2/ WEEK/AUC 6 Q3WEEKS
     Dates: start: 20041018, end: 20041221
  4. CARBOPLATIN [Suspect]
     Indication: NON-SMALL CELL LUNG CANCER
     Dosage: AUC 2/ WEEK/AUC 6 Q3WEEKS
     Dates: start: 20050105, end: 20050203
  5. ZANTAC [Concomitant]
  6. CLONIDINE [Concomitant]
  7. ADVAIR DISKUS 100/50 [Concomitant]
  8. SPIRIVA [Concomitant]
  9. NASONEX [Concomitant]
  10. A/A NEBULIZERS [Concomitant]
  11. THEOPHYLINE [Concomitant]
  12. ALLEGRA [Concomitant]
  13. XANAX [Concomitant]
  14. LORTAB [Concomitant]

REACTIONS (5)
  - ARTERIAL DISORDER [None]
  - ARTERIAL HAEMORRHAGE [None]
  - GASTROINTESTINAL EROSION [None]
  - HAEMATEMESIS [None]
  - HAEMOPTYSIS [None]
